FAERS Safety Report 4514367-7 (Version None)
Quarter: 2004Q4

REPORT INFORMATION
  Report Type: 
  Country: None (occurrence: None)
  Receive Date: 20041124
  Receipt Date: 20041108
  Transmission Date: 20050328
  Serious: Yes (Other)
  Sender: FDA-Public Use
  Company Number: EWC041141372

PATIENT
  Age: 74 Year
  Sex: Female
  Weight: 60 kg

DRUGS (4)
  1. FORTEO [Suspect]
     Indication: OSTEOPOROSIS
     Dates: start: 20040927
  2. TEGRETOL (CARBAMAZEPINE RIVOPHARM) [Concomitant]
  3. SIVASTIN (SIMVASTATIN RATIOPHARM) [Concomitant]
  4. RAMIPRIL [Concomitant]

REACTIONS (2)
  - CONVULSION [None]
  - TRANSIENT ISCHAEMIC ATTACK [None]
